FAERS Safety Report 15891303 (Version 1)
Quarter: 2019Q1

REPORT INFORMATION
  Report Type: Spontaneous
  Country: US (occurrence: US)
  Receive Date: 20190130
  Receipt Date: 20190130
  Transmission Date: 20190417
  Serious: No
  Sender: FDA-Public Use
  Company Number: US-ALLERGAN-1823089US

PATIENT
  Age: 25 Year
  Sex: Female

DRUGS (4)
  1. VYVANSE [Concomitant]
     Active Substance: LISDEXAMFETAMINE DIMESYLATE
     Dosage: 30 MG, UNK
     Route: 048
  2. VIIBRYD [Suspect]
     Active Substance: VILAZODONE HYDROCHLORIDE
     Dosage: 20 MG, UNK
     Route: 048
     Dates: start: 20180418, end: 20180420
  3. VIIBRYD [Suspect]
     Active Substance: VILAZODONE HYDROCHLORIDE
     Indication: GENERALISED ANXIETY DISORDER
     Dosage: 10 MG, UNK
     Route: 048
     Dates: start: 20180412
  4. HYDROXYZINE [Concomitant]
     Active Substance: HYDROXYZINE HYDROCHLORIDE
     Dosage: 10 MG, Q6HR
     Route: 048

REACTIONS (5)
  - Nausea [Recovering/Resolving]
  - Disturbance in sexual arousal [Recovering/Resolving]
  - Female orgasmic disorder [Recovering/Resolving]
  - Off label use [Unknown]
  - Anxiety [Recovering/Resolving]

NARRATIVE: CASE EVENT DATE: 201804
